FAERS Safety Report 20372998 (Version 1)
Quarter: 2022Q1

REPORT INFORMATION
  Report Type: Spontaneous
  Country: US (occurrence: US)
  Receive Date: 20220125
  Receipt Date: 20220125
  Transmission Date: 20220424
  Serious: Yes (Hospitalization)
  Sender: FDA-Public Use
  Company Number: US-AUROBINDO-AUR-APL-2022-000460

PATIENT
  Age: 7 Year
  Sex: Male

DRUGS (8)
  1. METHOTREXATE [Suspect]
     Active Substance: METHOTREXATE
     Indication: Pityriasis lichenoides et varioliformis acuta
     Dosage: 0.5 MG/KG/WEEK (WEEKLY)
     Route: 065
  2. CYCLOSPORINE [Suspect]
     Active Substance: CYCLOSPORINE
     Indication: Pityriasis lichenoides et varioliformis acuta
     Dosage: UNK
     Route: 065
  3. PRIVIGEN [Suspect]
     Active Substance: HUMAN IMMUNOGLOBULIN G
     Indication: Pityriasis lichenoides et varioliformis acuta
     Dosage: UNK
     Route: 042
  4. ETANERCEPT [Suspect]
     Active Substance: ETANERCEPT
     Indication: Pityriasis lichenoides et varioliformis acuta
     Dosage: UNK
     Route: 065
  5. RUXOLITINIB [Suspect]
     Active Substance: RUXOLITINIB
     Indication: Pityriasis lichenoides et varioliformis acuta
     Dosage: 5 MILLIGRAM, TWO TIMES A DAY (DAILY)
     Route: 065
  6. RUXOLITINIB [Suspect]
     Active Substance: RUXOLITINIB
     Dosage: 10 MILLIGRAM, TWO TIMES A DAY (DAILY)
     Route: 065
  7. TOCILIZUMAB [Suspect]
     Active Substance: TOCILIZUMAB
     Indication: Pityriasis lichenoides et varioliformis acuta
     Dosage: 8 MG/KG
     Route: 065
  8. TOCILIZUMAB [Suspect]
     Active Substance: TOCILIZUMAB
     Dosage: UNK, TOCILIZUMAB INFUSIONS EVERY TWO WEEKS,
     Route: 065

REACTIONS (1)
  - Drug ineffective for unapproved indication [Unknown]
